FAERS Safety Report 16135014 (Version 2)
Quarter: 2019Q2

REPORT INFORMATION
  Report Type: Spontaneous
  Country: US (occurrence: US)
  Receive Date: 20190329
  Receipt Date: 20190409
  Transmission Date: 20190711
  Serious: No
  Sender: FDA-Public Use
  Company Number: US-BAYER-2019-060580

PATIENT
  Age: 6 Month
  Sex: Male
  Weight: 13.61 kg

DRUGS (1)
  1. MIRALAX [Suspect]
     Active Substance: POLYETHYLENE GLYCOL 3350
     Indication: GASTROINTESTINAL DISORDER
     Dosage: 1 CAPFUL 1-2 TIMES PER DAY
     Dates: start: 2016

REACTIONS (1)
  - Gastrointestinal disorder [Unknown]
